FAERS Safety Report 5974630-X (Version None)
Quarter: 2008Q4

REPORT INFORMATION
  Report Type: 
  Country: None (occurrence: None)
  Receive Date: 20081201
  Receipt Date: 20080204
  Transmission Date: 20090506
  Serious: No
  Sender: FDA-Public Use
  Company Number: US-AMGEN-KDL260384

PATIENT
  Sex: Female

DRUGS (3)
  1. ENBREL [Suspect]
     Indication: RHEUMATOID ARTHRITIS
     Route: 058
     Dates: start: 20030101
  2. HUMIRA [Concomitant]
     Dates: start: 20071002, end: 20071023
  3. LYRICA [Concomitant]
     Dates: end: 20071123

REACTIONS (11)
  - BONE CALLUS EXCESSIVE [None]
  - DIARRHOEA [None]
  - FOOT DEFORMITY [None]
  - HYPERKERATOSIS [None]
  - LOCALISED INFECTION [None]
  - OEDEMA PERIPHERAL [None]
  - OROPHARYNGEAL PAIN [None]
  - RASH ERYTHEMATOUS [None]
  - RHEUMATOID ARTHRITIS [None]
  - TENDON INJURY [None]
  - UPPER RESPIRATORY TRACT CONGESTION [None]
